FAERS Safety Report 9670089 (Version 1)
Quarter: 2013Q4

REPORT INFORMATION
  Report Type: Spontaneous
  Country: US (occurrence: US)
  Receive Date: 20131105
  Receipt Date: 20131105
  Transmission Date: 20140711
  Serious: Yes (Hospitalization)
  Sender: FDA-Public Use
  Company Number: US-B.I. PHARMACEUTICALS,INC./RIDGEFIELD-2013-BI-35007BP

PATIENT
  Age: 77 Year
  Sex: Male
  Weight: 69.2 kg

DRUGS (11)
  1. PRADAXA [Suspect]
     Indication: ATRIAL FIBRILLATION
     Dosage: 150 MG
     Route: 048
     Dates: end: 201102
  2. CARVEDILOL [Concomitant]
     Dosage: 25 MG
  3. EPLERENONE [Concomitant]
     Dosage: 25 MG
  4. LISINOPRIL [Concomitant]
     Dosage: 5 MG
  5. FUROSEMIDE [Concomitant]
     Dosage: 80 MG
  6. COLCHICINE [Concomitant]
     Dosage: 0.6 MG
  7. DIGOXIN [Concomitant]
  8. ASPIRIN [Concomitant]
     Dosage: 81 MG
     Route: 048
  9. DOFETILIDE [Concomitant]
     Dosage: 250 MG
  10. ALLOPURINOL [Concomitant]
     Dosage: 100 MG
  11. LUNESTA [Concomitant]

REACTIONS (5)
  - Injury [Recovered/Resolved]
  - Road traffic accident [Recovered/Resolved]
  - Haemorrhage intracranial [Recovered/Resolved]
  - Subarachnoid haemorrhage [Recovered/Resolved]
  - Loss of consciousness [Recovered/Resolved]
